FAERS Safety Report 5091038-2 (Version None)
Quarter: 2006Q3

REPORT INFORMATION
  Report Type: 
  Country: None (occurrence: None)
  Receive Date: 20060829
  Receipt Date: 20051220
  Transmission Date: 20061208
  Serious: No
  Sender: FDA-Public Use
  Company Number: US-GLAXOSMITHKLINE-A0586459A

PATIENT
  Sex: Female

DRUGS (2)
  1. ZOVIRAX [Suspect]
     Dosage: 200MG FIVE TIMES PER DAY
     Route: 048
     Dates: start: 20051213, end: 20051217
  2. NO CONCURRENT MEDICATION [Concomitant]

REACTIONS (1)
  - FUNGAL INFECTION [None]
